FAERS Safety Report 15180786 (Version 2)
Quarter: 2018Q3

REPORT INFORMATION
  Report Type: Report from Study
  Country: MX (occurrence: MX)
  Receive Date: 20180723
  Receipt Date: 20180905
  Transmission Date: 20181010
  Serious: Yes (Other)
  Sender: FDA-Public Use
  Company Number: PHHY2018MX051737

PATIENT
  Age: 56 Year
  Sex: Female
  Weight: 82 kg

DRUGS (1)
  1. CO?DIOVAN [Suspect]
     Active Substance: HYDROCHLOROTHIAZIDE\VALSARTAN
     Indication: HYPERTENSION
     Dosage: 1 DF (HYDROCHLOROTHIAZIDE 25MG, VALSARTAN 160 MG), QD
     Route: 048

REACTIONS (5)
  - Diabetes mellitus [Not Recovered/Not Resolved]
  - Neck pain [Recovered/Resolved]
  - Malaise [Recovered/Resolved]
  - Visual impairment [Recovered/Resolved]
  - Blood pressure increased [Recovered/Resolved]

NARRATIVE: CASE EVENT DATE: 20180718
